FAERS Safety Report 20086149 (Version 3)
Quarter: 2021Q4

REPORT INFORMATION
  Report Type: Report from Study
  Country: CO (occurrence: CO)
  Receive Date: 20211118
  Receipt Date: 20211220
  Transmission Date: 20220303
  Serious: Yes (Life-Threatening, Hospitalization)
  Sender: FDA-Public Use
  Company Number: CO-NOVARTISPH-NVSC2020CO197235

PATIENT
  Age: 63 Year
  Sex: Female

DRUGS (2)
  1. ELTROMBOPAG OLAMINE [Suspect]
     Active Substance: ELTROMBOPAG OLAMINE
     Indication: Aplastic anaemia
     Dosage: 150 MG, QD
     Route: 048
     Dates: start: 202006
  2. ELTROMBOPAG OLAMINE [Suspect]
     Active Substance: ELTROMBOPAG OLAMINE
     Dosage: UNK (STOPPED 15 DAYS AGO)
     Route: 048

REACTIONS (8)
  - Platelet count decreased [Not Recovered/Not Resolved]
  - Haematoma [Unknown]
  - Peripheral swelling [Unknown]
  - Malaise [Unknown]
  - Hypoaesthesia [Unknown]
  - Muscle rigidity [Unknown]
  - Pain in extremity [Unknown]
  - Fatigue [Unknown]

NARRATIVE: CASE EVENT DATE: 20200601
